FAERS Safety Report 13376206 (Version 2)
Quarter: 2017Q2

REPORT INFORMATION
  Report Type: Spontaneous
  Country: US (occurrence: US)
  Receive Date: 20170328
  Receipt Date: 20170502
  Transmission Date: 20170830
  Serious: Yes (Death, Congenital Anomaly, Other)
  Sender: FDA-Public Use
  Company Number: US-EMD SERONO-8150738

PATIENT

DRUGS (1)
  1. REBIF [Suspect]
     Active Substance: INTERFERON BETA-1A
     Indication: PRODUCT USED FOR UNKNOWN INDICATION
     Route: 064

REACTIONS (4)
  - Foetal exposure timing unspecified [Recovered/Resolved]
  - Death [Fatal]
  - Multiple congenital abnormalities [Unknown]
  - Premature baby [Unknown]

NARRATIVE: CASE EVENT DATE: 2011
